FAERS Safety Report 5972314-5 (Version None)
Quarter: 2008Q4

REPORT INFORMATION
  Report Type: 
  Country: None (occurrence: None)
  Receive Date: 20081201
  Receipt Date: 20080721
  Transmission Date: 20090506
  Serious: Yes (Other)
  Sender: FDA-Public Use
  Company Number: US-TEVA-175722USA

PATIENT
  Sex: Male
  Weight: 83.536 kg

DRUGS (1)
  1. SALBUTAMOL SULFATE INHALATION, 0.09 MG [Suspect]
     Indication: ASTHMA
     Route: 055
     Dates: start: 20080607, end: 20080610

REACTIONS (1)
  - DRUG EFFECT DECREASED [None]
